FAERS Safety Report 9556754 (Version 4)
Quarter: 2016Q3

REPORT INFORMATION
  Report Type: Spontaneous
  Country: US (occurrence: US)
  Receive Date: 20130926
  Receipt Date: 20160908
  Transmission Date: 20161109
  Serious: No
  Sender: FDA-Public Use
  Company Number: US-PFIZER INC-2013275418

PATIENT
  Age: 72 Year
  Sex: Female
  Weight: 80.74 kg

DRUGS (2)
  1. OXYCODONE [Concomitant]
     Active Substance: OXYCODONE
     Indication: RHEUMATOID ARTHRITIS
     Dosage: 5 MG, 3X/DAY
     Route: 048
     Dates: start: 2011
  2. XELJANZ [Suspect]
     Active Substance: TOFACITINIB CITRATE
     Indication: RHEUMATOID ARTHRITIS
     Dosage: 5 MG, 2X/DAY
     Route: 048
     Dates: start: 20130102

REACTIONS (7)
  - Hyperaesthesia [Unknown]
  - Neuralgia [Not Recovered/Not Resolved]
  - Condition aggravated [Unknown]
  - Fall [Unknown]
  - Pain in extremity [Not Recovered/Not Resolved]
  - Swelling [Unknown]
  - Back disorder [Unknown]

NARRATIVE: CASE EVENT DATE: 2013
